FAERS Safety Report 22362703 (Version 1)
Quarter: 2023Q2

REPORT INFORMATION
  Report Type: Spontaneous
  Country: US (occurrence: US)
  Receive Date: 20230524
  Receipt Date: 20230524
  Transmission Date: 20230722
  Serious: Yes (Hospitalization)
  Sender: FDA-Public Use
  Company Number: US-PRINSTON PHARMACEUTICAL INC.-2023PRN00232

PATIENT
  Age: 50 Year
  Sex: Male

DRUGS (3)
  1. DIVALPROEX SODIUM [Suspect]
     Active Substance: DIVALPROEX SODIUM
     Indication: Epilepsy
     Dosage: 1500 MG (ER), 2X/DAY
     Route: 048
     Dates: start: 2018
  2. TIRZEPATIDE [Suspect]
     Active Substance: TIRZEPATIDE
     Indication: Weight decreased
     Dosage: 2.5 MG, 1X/WEEK
  3. LEVETIRACETAM [Concomitant]
     Active Substance: LEVETIRACETAM
     Indication: Epilepsy
     Dosage: 1000 MG, 1X/DAY
     Dates: start: 2018

REACTIONS (6)
  - Toxicity to various agents [Unknown]
  - Hypoacusis [Unknown]
  - Thrombocytopenia [Unknown]
  - Ataxia [Unknown]
  - Encephalopathy [Unknown]
  - Drug interaction [Recovered/Resolved]
